FAERS Safety Report 6158030-8 (Version None)
Quarter: 2009Q2

REPORT INFORMATION
  Report Type: 
  Country: None (occurrence: None)
  Receive Date: 20090417
  Receipt Date: 20090416
  Transmission Date: 20091009
  Serious: Yes (Death, Hospitalization, Other)
  Sender: FDA-Public Use
  Company Number: US-PFIZER INC-2009177113

PATIENT

DRUGS (3)
  1. ZYVOX [Suspect]
  2. ANTIEMETICS AND ANTINAUSEANTS [Concomitant]
  3. CORTICOSTEROIDS [Concomitant]

REACTIONS (3)
  - DEATH [None]
  - GASTRITIS [None]
  - LACTIC ACIDOSIS [None]
